FAERS Safety Report 22114926 (Version 2)
Quarter: 2023Q2

REPORT INFORMATION
  Report Type: Spontaneous
  Country: US (occurrence: US)
  Receive Date: 20230320
  Receipt Date: 20230529
  Transmission Date: 20230721
  Serious: Yes (Other)
  Sender: FDA-Public Use
  Company Number: US-PFIZER INC-PV202300049786

PATIENT
  Age: 69 Year
  Sex: Female

DRUGS (2)
  1. EUCRISA [Suspect]
     Active Substance: CRISABOROLE
     Indication: Eczema asteatotic
     Dosage: FFECTED AREA ON BODY TWICE DAILY AS NEEDED
     Route: 061
  2. EUCRISA [Suspect]
     Active Substance: CRISABOROLE
     Dosage: APPLY TO LOWER LEGS TWICE DAILY UNTIL HEALED
     Route: 061

REACTIONS (4)
  - Femur fracture [Unknown]
  - Lower limb fracture [Unknown]
  - Skin irritation [Unknown]
  - Off label use [Unknown]
